FAERS Safety Report 5047213-6 (Version None)
Quarter: 2006Q3

REPORT INFORMATION
  Report Type: 
  Country: None (occurrence: None)
  Receive Date: 20060703
  Receipt Date: 20060621
  Transmission Date: 20061208
  Serious: Yes (Hospitalization)
  Sender: FDA-Public Use
  Company Number: 2005EU002413

PATIENT
  Age: 56 Year
  Sex: Female

DRUGS (8)
  1. FK506 (TACROLIMUS) CAPSULE [Suspect]
     Indication: LIVER TRANSPLANT
     Dosage: 3.00 MG, UID/QD,  ORAL
     Route: 048
     Dates: start: 20041229, end: 20050126
  2. MYCOPHENOLATE MOFETIL [Suspect]
     Indication: LIVER TRANSPLANT
     Dosage: 1000.00 BID, IV NOS;  1000.00 MG, BID, ORAL
     Route: 042
     Dates: start: 20041228, end: 20041231
  3. MYCOPHENOLATE MOFETIL [Suspect]
     Indication: LIVER TRANSPLANT
     Dosage: 1000.00 BID, IV NOS;  1000.00 MG, BID, ORAL
     Route: 042
     Dates: start: 20050101
  4. METHYLPREDNISOLONE [Suspect]
     Indication: LIVER TRANSPLANT
     Dosage: 250.00 MG, UID/QD
     Dates: start: 20041229, end: 20050119
  5. PREDNISONE TAB [Suspect]
     Indication: LIVER TRANSPLANT
     Dosage: 20.00 MG, UID/QD
     Dates: start: 20050101, end: 20050119
  6. TAZOCILLINE (PIPERACILLIN SODIUM, TAZOBACTAM SODIUM) [Concomitant]
  7. ACETAMINOPHEN [Concomitant]
  8. INSULIN [Concomitant]

REACTIONS (2)
  - DRUG TOXICITY [None]
  - HEPATORENAL SYNDROME [None]
